FAERS Safety Report 5127118-2 (Version None)
Quarter: 2006Q4

REPORT INFORMATION
  Report Type: 
  Country: None (occurrence: None)
  Receive Date: 20061013
  Receipt Date: 20060523
  Transmission Date: 20070319
  Serious: Yes (Disabling)
  Sender: FDA-Public Use
  Company Number: PHFR2006GB01794

PATIENT
  Age: 59 Year
  Sex: Female

DRUGS (1)
  1. ZOMETA [Suspect]
     Dosage: 4MG/DAY
     Route: 042
     Dates: start: 20040329, end: 20050411

REACTIONS (1)
  - OSTEONECROSIS [None]
